FAERS Safety Report 22172801 (Version 1)
Quarter: 2023Q2

REPORT INFORMATION
  Report Type: Spontaneous
  Country: SE (occurrence: SE)
  Receive Date: 20230404
  Receipt Date: 20230404
  Transmission Date: 20230721
  Serious: Yes (Disabling)
  Sender: FDA-Public Use
  Company Number: None

PATIENT
  Age: 47 Year
  Sex: Male
  Weight: 80 kg

DRUGS (5)
  1. NASONEX [Suspect]
     Active Substance: MOMETASONE FUROATE
     Indication: Sinus pain
     Dosage: 2 DOSAGE FORM, QD, DOSE: 2 (UNITS NOT PROVIDED), 50 MICROGRAM PER ACTUATION, ONE ACTUATION IN EACH N
     Dates: start: 2005, end: 2018
  2. NASONEX [Suspect]
     Active Substance: MOMETASONE FUROATE
     Dosage: 2 DOSAGE FORM, QD, 50 MICROGRAM, QD ONE ACTUATION IN EACH NOSTRIL MORNING AND EVENING. PERIODICALLY
     Dates: start: 2005, end: 2018
  3. FLUTICASONE FUROATE [Suspect]
     Active Substance: FLUTICASONE FUROATE
     Indication: Sinus pain
     Dosage: DOSAGE INFORMATION: NOT REPORTED, PERIODICALLY TREATED WITH ALL FOUR SUSPECT DRUGS DURING THE YEARS
     Dates: start: 2005, end: 2018
  4. BUDESONIDE [Suspect]
     Active Substance: BUDESONIDE
     Indication: Sinus pain
     Dosage: DOSAGE INFORMATION: NOT REPORTED, PERIODICALLY TREATED WITH ALL FOUR SUSPECT DRUGS DURING THE YEARS
     Dates: start: 2005, end: 2018
  5. MOMETASONE FUROATE [Suspect]
     Active Substance: MOMETASONE FUROATE
     Indication: Sinus pain
     Dosage: DOSAGE INFORMATION: NOT REPORTED, PERIODICALLY TREATED WITH ALL FOUR SUSPECT DRUGS DURING THE YEARS
     Dates: start: 2005, end: 2018

REACTIONS (3)
  - Condition aggravated [Not Recovered/Not Resolved]
  - Neuritis [Not Recovered/Not Resolved]
  - Neuralgia [Not Recovered/Not Resolved]

NARRATIVE: CASE EVENT DATE: 20150101
